FAERS Safety Report 6911508-9 (Version None)
Quarter: 2010Q3

REPORT INFORMATION
  Report Type: 
  Country: None (occurrence: None)
  Receive Date: 20100806
  Receipt Date: 20100726
  Transmission Date: 20110219
  Serious: Yes (Hospitalization)
  Sender: FDA-Public Use
  Company Number: US-BAYER-201022433NA

PATIENT
  Age: 17 Year
  Sex: Female
  Weight: 95 kg

DRUGS (4)
  1. YAZ [Suspect]
     Indication: PRODUCT USED FOR UNKNOWN INDICATION
     Route: 048
     Dates: start: 20080601, end: 20080701
  2. ASTHMA MEDICATIONS [Concomitant]
     Indication: ASTHMA
     Route: 055
  3. ALLERGY MEDICATIONS [Concomitant]
     Indication: HYPERSENSITIVITY
     Route: 055
  4. PROTONIX [Concomitant]

REACTIONS (7)
  - DEEP VEIN THROMBOSIS [None]
  - LIMB DISCOMFORT [None]
  - OEDEMA PERIPHERAL [None]
  - PAIN IN EXTREMITY [None]
  - PULMONARY EMBOLISM [None]
  - PULMONARY INFARCTION [None]
  - THROMBOPHLEBITIS [None]
